FAERS Safety Report 9100046 (Version 1)
Quarter: 2013Q1

REPORT INFORMATION
  Report Type: Spontaneous
  Country: CA (occurrence: CA)
  Receive Date: 20130215
  Receipt Date: 20130215
  Transmission Date: 20140127
  Serious: Yes (Hospitalization, Other)
  Sender: FDA-Public Use
  Company Number: CA-AMGEN-CANSP2013008897

PATIENT
  Age: 53 Year
  Sex: Female
  Weight: 61.36 kg

DRUGS (1)
  1. PROLIA [Suspect]
     Indication: OSTEOPOROSIS
     Dosage: 60 MG, UNK
     Dates: start: 20120817

REACTIONS (4)
  - Pneumothorax [Unknown]
  - Metastases to central nervous system [Unknown]
  - Subcutaneous emphysema [Recovered/Resolved]
  - Cataract [Unknown]
